FAERS Safety Report 22973169 (Version 3)
Quarter: 2023Q4

REPORT INFORMATION
  Report Type: Spontaneous
  Country: CN (occurrence: CN)
  Receive Date: 20230922
  Receipt Date: 20231025
  Transmission Date: 20240109
  Serious: Yes (Hospitalization, Other)
  Sender: FDA-Public Use
  Company Number: CN-009507513-2309CHN005479

PATIENT
  Age: 82 Year
  Sex: Female

DRUGS (1)
  1. LAGEVRIO [Suspect]
     Active Substance: MOLNUPIRAVIR
     Indication: COVID-19 treatment
     Dosage: TOOK ONE BOTTLE OF THE DRUG FOR SEVEN DAYS, AND AT THE END THERE WAS ONLY ONE PILL LEFT;ADJUSTED THE
     Route: 048
     Dates: start: 20230902

REACTIONS (9)
  - Pneumonia [Not Recovered/Not Resolved]
  - Hospitalisation [Unknown]
  - Pain in extremity [Unknown]
  - Muscular weakness [Unknown]
  - Decreased appetite [Not Recovered/Not Resolved]
  - Cardiac discomfort [Unknown]
  - Drug ineffective [Unknown]
  - Intentional product misuse [Unknown]
  - Product dose omission in error [Unknown]

NARRATIVE: CASE EVENT DATE: 20230101
